FAERS Safety Report 7545979-4 (Version None)
Quarter: 2011Q2

REPORT INFORMATION
  Report Type: 
  Country: None (occurrence: None)
  Receive Date: 20110614
  Receipt Date: 20110610
  Transmission Date: 20111010
  Serious: Yes (Other)
  Sender: FDA-Public Use
  Company Number: JP-PFIZER INC-2011127900

PATIENT
  Age: 75 Year
  Sex: Female

DRUGS (2)
  1. LYRICA [Suspect]
     Dosage: 25 MG/DAY
     Route: 048
     Dates: start: 20110520
  2. LYRICA [Suspect]
     Dosage: 75 MG/DAY
     Route: 048
     Dates: start: 20110301

REACTIONS (6)
  - HEAD DISCOMFORT [None]
  - NAUSEA [None]
  - BLOOD PRESSURE INCREASED [None]
  - HEADACHE [None]
  - CHEST DISCOMFORT [None]
  - OCULAR HYPERAEMIA [None]
